FAERS Safety Report 20700883 (Version 1)
Quarter: 2022Q2

REPORT INFORMATION
  Report Type: Spontaneous
  Country: US (occurrence: None)
  Receive Date: 20220411
  Receipt Date: 20220411
  Transmission Date: 20220721
  Serious: Yes (Death)
  Sender: FDA-Public Use
  Company Number: None

PATIENT
  Age: 35 Year
  Sex: Male

DRUGS (6)
  1. OPSUMIT [Suspect]
     Active Substance: MACITENTAN
     Indication: Pulmonary hypertension
     Dosage: FREQUENCY : DAILY;?
     Route: 048
     Dates: start: 20190909, end: 20220330
  2. SILDENAFIL [Concomitant]
     Active Substance: SILDENAFIL
  3. CLINDAMYCIN [Concomitant]
     Active Substance: CLINDAMYCIN
  4. DOXYCYCLINE [Concomitant]
     Active Substance: DOXYCYCLINE
  5. TRAMADOL [Concomitant]
     Active Substance: TRAMADOL
  6. Clobetasol top oint [Concomitant]

REACTIONS (5)
  - Hypoxia [None]
  - Drug screen positive [None]
  - Intentional dose omission [None]
  - Right ventricular failure [None]
  - Pulseless electrical activity [None]

NARRATIVE: CASE EVENT DATE: 20220330
